FAERS Safety Report 16963198 (Version 1)
Quarter: 2019Q4

REPORT INFORMATION
  Report Type: Report from Study
  Country: FR (occurrence: FR)
  Receive Date: 20191025
  Receipt Date: 20191025
  Transmission Date: 20200122
  Serious: Yes (Hospitalization, Other)
  Sender: FDA-Public Use
  Company Number: FR-INTERCEPT-PM2019001815

PATIENT
  Age: 53 Year
  Sex: Female
  Weight: 64 kg

DRUGS (8)
  1. ALDACTONE [Concomitant]
     Active Substance: SPIRONOLACTONE
     Dosage: 50 MG, BID
  2. DELURSAN [Concomitant]
     Active Substance: URSODIOL
     Dosage: 500 MG, BID
     Dates: start: 2002
  3. OBETICHOLIC ACID [Suspect]
     Active Substance: OBETICHOLIC ACID
     Dosage: 5 MG, QD
     Route: 048
     Dates: end: 20180531
  4. OBETICHOLIC ACID [Suspect]
     Active Substance: OBETICHOLIC ACID
     Dosage: 5 MG, EVERY TWO DAYS
     Route: 048
  5. SPECIAFOLDINE [Concomitant]
     Active Substance: FOLIC ACID
     Dosage: 5 MG, QD
  6. OBETICHOLIC ACID [Suspect]
     Active Substance: OBETICHOLIC ACID
     Indication: PRIMARY BILIARY CHOLANGITIS
     Dosage: 5 MG, QD
     Route: 048
     Dates: start: 20170824
  7. KREDEX [Concomitant]
     Active Substance: CARVEDILOL
     Dosage: 12.5 MG, QD
  8. LASILIX [Concomitant]
     Active Substance: FUROSEMIDE
     Dosage: 40 MG, QD

REACTIONS (13)
  - Insomnia [Unknown]
  - Transplant evaluation [Unknown]
  - Hepatomegaly [Unknown]
  - Pleural effusion [Unknown]
  - Vitamin D deficiency [Unknown]
  - Hyponatraemia [Recovered/Resolved]
  - Biliary cirrhosis [Recovered/Resolved]
  - Hypokalaemia [Recovered/Resolved]
  - Muscle spasms [Unknown]
  - Pruritus [Unknown]
  - Asthenia [Unknown]
  - Oedema peripheral [Unknown]
  - Renal failure [Unknown]

NARRATIVE: CASE EVENT DATE: 20180108
